FAERS Safety Report 6306639-0 (Version None)
Quarter: 2009Q3

REPORT INFORMATION
  Report Type: 
  Country: None (occurrence: None)
  Receive Date: 20090812
  Receipt Date: 20090804
  Transmission Date: 20100115
  Serious: Yes (Other)
  Sender: FDA-Public Use
  Company Number: B0587124A

PATIENT
  Age: 39 Year
  Sex: Female
  Weight: 68 kg

DRUGS (7)
  1. LAMOTRIGINE [Suspect]
     Indication: BIPOLAR DISORDER
     Route: 048
     Dates: start: 20090630, end: 20090708
  2. QUETIAPINE FUMARATE [Concomitant]
     Route: 048
  3. DIAZEPAM [Concomitant]
     Route: 048
     Dates: start: 20060601
  4. FUROSEMIDE [Concomitant]
     Route: 048
  5. QUETIAPINE FUMARATE [Concomitant]
     Route: 048
     Dates: start: 20090611
  6. QUETIAPINE FUMARATE [Concomitant]
     Route: 048
  7. DIAZEPAM [Concomitant]
     Route: 048

REACTIONS (3)
  - CONJUNCTIVITIS [None]
  - RASH [None]
  - SWOLLEN TONGUE [None]
